FAERS Safety Report 24302176 (Version 1)
Quarter: 2024Q3

REPORT INFORMATION
  Report Type: Spontaneous
  Country: TR (occurrence: CN)
  Receive Date: 20240910
  Receipt Date: 20240910
  Transmission Date: 20241016
  Serious: Yes (Other)
  Sender: Steriscience PTE
  Company Number: TR-STERISCIENCE B.V.-2024-ST-001316

PATIENT
  Age: 91 Year
  Sex: Female

DRUGS (6)
  1. MEROPENEM [Suspect]
     Active Substance: MEROPENEM
     Indication: Antibiotic therapy
     Dosage: 3 ? 1 G
     Route: 065
  2. MEROPENEM [Suspect]
     Active Substance: MEROPENEM
     Indication: Corynebacterium infection
  3. MEROPENEM [Suspect]
     Active Substance: MEROPENEM
     Indication: Endocarditis
  4. DAPTOMYCIN [Suspect]
     Active Substance: DAPTOMYCIN
     Indication: Antibiotic therapy
     Dosage: 1 ? 750 MG
     Route: 065
  5. DAPTOMYCIN [Suspect]
     Active Substance: DAPTOMYCIN
     Indication: Corynebacterium infection
  6. DAPTOMYCIN [Suspect]
     Active Substance: DAPTOMYCIN
     Indication: Endocarditis

REACTIONS (1)
  - Condition aggravated [Unknown]
